FAERS Safety Report 7273365-3 (Version None)
Quarter: 2011Q1

REPORT INFORMATION
  Report Type: 
  Country: None (occurrence: None)
  Receive Date: 20110203
  Receipt Date: 20100831
  Transmission Date: 20110831
  Serious: No
  Sender: FDA-Public Use
  Company Number: US-ABBOTT-10P-163-0668706-00

PATIENT
  Sex: Female
  Weight: 83.99 kg

DRUGS (3)
  1. LEVOTHYROXINE SODIUM [Suspect]
     Indication: HYPOTHYROIDISM
     Dates: end: 20100701
  2. SYNTHROID [Suspect]
     Indication: HYPOTHYROIDISM
     Dates: start: 20080101
  3. SYNTHROID [Suspect]
     Dates: start: 20100701

REACTIONS (1)
  - ALOPECIA [None]
